FAERS Safety Report 6875797-1 (Version None)
Quarter: 2010Q3

REPORT INFORMATION
  Report Type: 
  Country: None (occurrence: None)
  Receive Date: 20100727
  Receipt Date: 20070712
  Transmission Date: 20110219
  Serious: Yes (Death, Hospitalization, Other)
  Sender: FDA-Public Use
  Company Number: US-PFIZER INC-2006119037

PATIENT
  Sex: Female

DRUGS (6)
  1. CELEBREX [Suspect]
     Indication: OSTEOARTHRITIS
     Dates: start: 20030101
  2. VIOXX [Suspect]
     Indication: OSTEOARTHRITIS
     Dates: start: 19990501, end: 20031101
  3. SKELAXIN [Concomitant]
     Dates: start: 19990101, end: 20030101
  4. BISOPROLOL [Concomitant]
     Dates: start: 19990101, end: 20030101
  5. NORVASC [Concomitant]
     Dates: start: 19990101, end: 20030101
  6. ZOCOR [Concomitant]
     Dates: start: 19990101, end: 20030101

REACTIONS (1)
  - CEREBROVASCULAR ACCIDENT [None]
